FAERS Safety Report 6199485-2 (Version None)
Quarter: 2009Q2

REPORT INFORMATION
  Report Type: 
  Country: None (occurrence: None)
  Receive Date: 20090522
  Receipt Date: 20090511
  Transmission Date: 20091009
  Serious: Yes (Other)
  Sender: FDA-Public Use
  Company Number: TR-PFIZER INC-2009210941

PATIENT
  Age: 57 Year

DRUGS (2)
  1. LATANOPROST [Suspect]
     Indication: GLAUCOMA
     Dosage: UNK
     Dates: start: 20090330
  2. BRIMONIDINE TARTRATE/TIMOLOL MALEATE [Concomitant]

REACTIONS (2)
  - EYE BURNS [None]
  - ULCERATIVE KERATITIS [None]
